FAERS Safety Report 10590245 (Version 3)
Quarter: 2014Q4

REPORT INFORMATION
  Report Type: Spontaneous
  Country: US (occurrence: US)
  Receive Date: 20141118
  Receipt Date: 20141209
  Transmission Date: 20150529
  Serious: Yes (Other)
  Sender: FDA-Public Use
  Company Number: US-PFIZER INC-2014315566

PATIENT
  Age: 48 Year
  Sex: Female
  Weight: 89 kg

DRUGS (4)
  1. LYRICA [Suspect]
     Active Substance: PREGABALIN
     Dosage: 75 MG, ONE IN MORNING AND THREE AT NIGHT
  2. LYRICA [Suspect]
     Active Substance: PREGABALIN
     Dosage: TWO OF 75 MG
  3. WELLBUTRIN [Concomitant]
     Active Substance: BUPROPION HYDROCHLORIDE
     Dosage: 200 MG, 1X/DAY
  4. LYRICA [Suspect]
     Active Substance: PREGABALIN
     Indication: FIBROMYALGIA
     Dosage: 375 MG AT NIGHT AND 175 MG IN THE MORNING
     Dates: start: 1999

REACTIONS (9)
  - Pain [Unknown]
  - Nausea [Unknown]
  - Drug withdrawal syndrome [Recovered/Resolved]
  - Suicidal ideation [Unknown]
  - Seizure [Unknown]
  - Insomnia [Unknown]
  - Muscle twitching [Unknown]
  - Restless legs syndrome [Unknown]
  - Vomiting [Unknown]

NARRATIVE: CASE EVENT DATE: 2014
